FAERS Safety Report 9660096 (Version 2)
Quarter: 2014Q2

REPORT INFORMATION
  Report Type: Spontaneous
  Country: US (occurrence: US)
  Receive Date: 20131031
  Receipt Date: 20140509
  Transmission Date: 20141212
  Serious: Yes (Other)
  Sender: FDA-Public Use
  Company Number: US-PFIZER INC-2013310591

PATIENT
  Age: 51 Year
  Sex: Female
  Weight: 79.37 kg

DRUGS (3)
  1. RAPAMUNE [Suspect]
     Indication: PROPHYLAXIS AGAINST TRANSPLANT REJECTION
     Dosage: 3 MG, DAILY
  2. CELLCEPT [Suspect]
     Indication: RENAL TRANSPLANT
     Dosage: 250 MG, 2X/DAY
  3. LIPITOR [Concomitant]
     Dosage: 40 MG, DAILY

REACTIONS (1)
  - Kidney transplant rejection [Unknown]
